FAERS Safety Report 9851417 (Version 3)
Quarter: 2014Q1

REPORT INFORMATION
  Report Type: Spontaneous
  Country: IT (occurrence: IT)
  Receive Date: 20140129
  Receipt Date: 20140325
  Transmission Date: 20141002
  Serious: Yes (Hospitalization)
  Sender: FDA-Public Use
  Company Number: IT-MERCK-1401ITA011768

PATIENT
  Age: 59 Year
  Sex: Female

DRUGS (3)
  1. MIRTAZAPINE [Suspect]
     Indication: PARKINSON^S DISEASE
     Route: 048
  2. VALIUM [Interacting]
     Indication: MEDICATION ERROR
     Dosage: STRENGTH: 5MG/ML, 5 DROPS TOTAL DAILY
     Route: 048
     Dates: start: 20120912, end: 20120912
  3. TAVOR (LORAZEPAM) [Concomitant]
     Indication: PARKINSON^S DISEASE

REACTIONS (3)
  - Neurological symptom [Recovering/Resolving]
  - Tremor [Recovering/Resolving]
  - Labelled drug-drug interaction medication error [Recovering/Resolving]
